FAERS Safety Report 9305060 (Version 4)
Quarter: 2013Q3

REPORT INFORMATION
  Report Type: Spontaneous
  Country: GR (occurrence: GR)
  Receive Date: 20130523
  Receipt Date: 20130916
  Transmission Date: 20140515
  Serious: Yes (Other)
  Sender: FDA-Public Use
  Company Number: GR-JNJFOC-20130510749

PATIENT
  Age: 65 Year
  Sex: Male
  Weight: 89 kg

DRUGS (5)
  1. STELARA [Suspect]
     Indication: PSORIASIS
     Route: 058
     Dates: start: 20130826
  2. STELARA [Suspect]
     Indication: PSORIASIS
     Route: 058
     Dates: start: 20130402, end: 20130530
  3. ANTI-TUBERCULOSIS DRUG (NOS) [Suspect]
     Indication: TUBERCULOSIS
     Route: 048
  4. ISONIAZID [Suspect]
     Indication: PROPHYLACTIC CHEMOTHERAPY
     Route: 048
     Dates: start: 2013, end: 2013
  5. BESIX [Suspect]
     Indication: PROPHYLACTIC CHEMOTHERAPY
     Route: 048
     Dates: start: 2013, end: 2013

REACTIONS (2)
  - Transaminases increased [Recovered/Resolved]
  - Inappropriate schedule of drug administration [Unknown]
